FAERS Safety Report 5562473-0 (Version None)
Quarter: 2007Q4

REPORT INFORMATION
  Report Type: 
  Country: None (occurrence: None)
  Receive Date: 20071215
  Receipt Date: 20070103
  Transmission Date: 20080405
  Serious: No
  Sender: FDA-Public Use
  Company Number: US-AMGEN-US194225

PATIENT
  Sex: Male

DRUGS (5)
  1. ENBREL [Suspect]
     Indication: PSORIASIS
     Route: 058
     Dates: start: 20060602
  2. NEORAL [Concomitant]
     Route: 065
     Dates: start: 20060418, end: 20060730
  3. NEORAL [Concomitant]
     Dates: start: 20061117
  4. SORIATANE [Concomitant]
     Dates: start: 20061017, end: 20061117
  5. MAGNESIUM OXIDE [Concomitant]
     Route: 065
     Dates: start: 20060612

REACTIONS (2)
  - PRURITUS [None]
  - PSORIASIS [None]
